FAERS Safety Report 17289276 (Version 1)
Quarter: 2020Q1

REPORT INFORMATION
  Report Type: Spontaneous
  Country: CN (occurrence: CN)
  Receive Date: 20200120
  Receipt Date: 20200120
  Transmission Date: 20200409
  Serious: Yes (Other)
  Sender: FDA-Public Use
  Company Number: CN-FRESENIUS KABI-FK202000501

PATIENT
  Age: 45 Year
  Sex: Male
  Weight: 94 kg

DRUGS (2)
  1. CYSTEINE/GLYCINE/ALANINE/SERINE/ASPARTIC ACID/TYROSINE/LEUCINE/METHIONINE/PHENYLALANINE/HISTIDINE/VA [Concomitant]
     Indication: FLUID REPLACEMENT
     Dosage: 200ML, QD
     Route: 041
     Dates: start: 20200107, end: 20200107
  2. INTRALIPID [Suspect]
     Active Substance: EGG PHOSPHOLIPIDS\GLYCERIN\SOYBEAN OIL
     Indication: FLUID REPLACEMENT
     Dosage: 250ML, QD
     Route: 041
     Dates: start: 20200107, end: 20200107

REACTIONS (1)
  - Anaphylactic shock [Recovering/Resolving]

NARRATIVE: CASE EVENT DATE: 20200107
